FAERS Safety Report 19642108 (Version 2)
Quarter: 2021Q4

REPORT INFORMATION
  Report Type: Spontaneous
  Country: US (occurrence: US)
  Receive Date: 20210730
  Receipt Date: 20211122
  Transmission Date: 20220303
  Serious: No
  Sender: FDA-Public Use
  Company Number: US-JNJFOC-20210751292

PATIENT
  Age: 74 Year
  Sex: Female
  Weight: 77.180 kg

DRUGS (1)
  1. XARELTO [Suspect]
     Active Substance: RIVAROXABAN
     Indication: Product used for unknown indication
     Route: 048
     Dates: start: 2016

REACTIONS (2)
  - Product packaging quantity issue [Unknown]
  - Weight increased [Unknown]

NARRATIVE: CASE EVENT DATE: 20210723
